FAERS Safety Report 4543169-0 (Version None)
Quarter: 2004Q4

REPORT INFORMATION
  Report Type: 
  Country: None (occurrence: None)
  Receive Date: 20041229
  Receipt Date: 20041217
  Transmission Date: 20050328
  Serious: Yes (Hospitalization)
  Sender: FDA-Public Use
  Company Number: 2004SE07088

PATIENT
  Age: 61 Year
  Sex: Male

DRUGS (7)
  1. ROSUVASTATIN [Suspect]
     Indication: CARDIAC FAILURE
     Dosage: 10 MG DAILY PO
     Route: 048
     Dates: start: 20041208, end: 20041216
  2. HYGROTON [Concomitant]
  3. FUROSEMIDE [Concomitant]
  4. SPIRONOL [Concomitant]
  5. ACCUPRO [Concomitant]
  6. DIGOXIN [Concomitant]
  7. VIVACOR [Concomitant]

REACTIONS (8)
  - ACUTE PRERENAL FAILURE [None]
  - BLOOD ELECTROLYTES ABNORMAL [None]
  - CARDIAC FAILURE CONGESTIVE [None]
  - CONDITION AGGRAVATED [None]
  - DIALYSIS [None]
  - DIARRHOEA [None]
  - HYPOTENSION [None]
  - POLYURIA [None]
